FAERS Safety Report 7015246-6 (Version None)
Quarter: 2010Q3

REPORT INFORMATION
  Report Type: 
  Country: None (occurrence: None)
  Receive Date: 20100927
  Receipt Date: 20100922
  Transmission Date: 20110219
  Serious: Yes (Death)
  Sender: FDA-Public Use
  Company Number: US-ELI_LILLY_AND_COMPANY-US201008002043

PATIENT
  Sex: Male
  Weight: 87.4 kg

DRUGS (11)
  1. GEMCITABINE HCL [Suspect]
     Indication: RENAL CELL CARCINOMA
     Dosage: 1944 MG, OTHER
     Route: 042
     Dates: start: 20100721
  2. BEVACIZUMAB [Suspect]
     Indication: RENAL CELL CARCINOMA
     Dosage: 874 MG, OTHER
     Route: 042
     Dates: start: 20100721
  3. CAPECITABINE [Suspect]
     Indication: RENAL CELL CARCINOMA
     Dosage: 1450 MG, EACH MORNING
     Route: 048
     Dates: start: 20100721
  4. CAPECITABINE [Suspect]
     Dosage: 2000 MG, EACH EVENING
     Route: 048
     Dates: start: 20100721
  5. CRESTOR [Concomitant]
     Dosage: 20 MG, DAILY (1/D)
  6. ANDROGEL [Concomitant]
  7. PRILOSEC [Concomitant]
  8. RESTORIL [Concomitant]
     Dosage: 15 MG, UNK
  9. MELATONIN [Concomitant]
     Indication: INSOMNIA
  10. ASPIRIN [Concomitant]
  11. TYLENOL                                 /SCH/ [Concomitant]

REACTIONS (1)
  - DEATH [None]
